FAERS Safety Report 14687438 (Version 1)
Quarter: 2018Q1

REPORT INFORMATION
  Report Type: Spontaneous
  Country: US (occurrence: US)
  Receive Date: 20180328
  Receipt Date: 20180328
  Transmission Date: 20180509
  Serious: No
  Sender: FDA-Public Use
  Company Number: US-TEVA-787039ACC

PATIENT
  Sex: Female

DRUGS (1)
  1. QUARTETTE [Suspect]
     Active Substance: ETHINYL ESTRADIOL\LEVONORGESTREL
     Indication: AFFECTIVE DISORDER
     Dates: start: 2017, end: 2017

REACTIONS (4)
  - Panic attack [Unknown]
  - Mood swings [Unknown]
  - Product use in unapproved indication [Unknown]
  - Anxiety [Unknown]
